FAERS Safety Report 8845168 (Version 3)
Quarter: 2012Q4

REPORT INFORMATION
  Report Type: Report from Study
  Country: JP (occurrence: JP)
  Receive Date: 20121017
  Receipt Date: 20121106
  Transmission Date: 20130627
  Serious: Yes (Hospitalization, Other)
  Sender: FDA-Public Use
  Company Number: JP-OTSUKA-JP-2012-16528

PATIENT
  Age: 59 Year
  Sex: Male
  Weight: 69 kg

DRUGS (48)
  1. SAMSCA [Suspect]
     Indication: FLUID RETENTION
     Dosage: 7.5 Mg milligram(s), qam
     Route: 048
     Dates: start: 20120811, end: 20120814
  2. FRESH FROZEN PLASMA [Concomitant]
     Indication: SURGERY
     Dosage: 400 ml millilitre(s), daily dose
     Route: 042
     Dates: end: 20120806
  3. 10% GLUCOSE [Concomitant]
     Indication: CARDIAC FAILURE
     Dosage: 960 ml millilitre(s), daily dose
     Route: 041
     Dates: end: 20120806
  4. PERDIPINE [Concomitant]
     Indication: SURGERY
     Dosage: 30 Mg milligram(s), daily dose
     Route: 042
     Dates: end: 20120806
  5. ROMIKACIN [Concomitant]
     Indication: SURGERY
     Dosage: 400 Mg milligram(s), daily dose
     Route: 042
     Dates: end: 20120806
  6. XYLOCAINE [Concomitant]
     Indication: SURGERY
     Dosage: 300 Mg milligram(s), daily dose
     Route: 042
     Dates: end: 20120806
  7. FUROSEMIDE [Concomitant]
     Indication: SURGERY
     Dosage: 20 Mg milligram(s), daily dose
     Route: 042
     Dates: end: 20120806
  8. MILRILA [Concomitant]
     Indication: SURGERY
     Dosage: 20 Mg milligram(s), daily dose
     Route: 042
     Dates: end: 20120806
  9. BOSMIN [Concomitant]
     Indication: SURGERY
     Dosage: 2 Mg milligram(s), daily dose
     Route: 042
     Dates: end: 20120806
  10. DORMICUM [Concomitant]
     Indication: SURGERY
     Dosage: 10 Mg milligram(s), daily dose
     Route: 042
     Dates: end: 20120806
  11. NORADRENALINE [Concomitant]
     Indication: SURGERY
     Dosage: 3 Mg milligram(s), daily dose
     Route: 042
     Dates: end: 20120806
  12. MEYLON [Concomitant]
     Indication: SURGERY
     Dosage: 60 ml millilitre(s), daily dose
     Route: 042
     Dates: end: 20120806
  13. SOL MELCORT [Concomitant]
     Indication: SURGERY
     Dosage: 1000 Mg milligram(s), daily dose
     Route: 042
     Dates: end: 20120806
  14. PROTAMINE [Concomitant]
     Indication: SURGERY
     Dosage: 300 Mg milligram(s), daily dose
     Route: 042
     Dates: end: 20120806
  15. TRANSAMIN S [Concomitant]
     Indication: SURGERY
     Dosage: 3000 Mg milligram(s), daily dose
     Route: 042
     Dates: end: 20120806
  16. ADONA [Concomitant]
     Indication: SURGERY
     Dosage: 100 Mg milligram(s), daily dose
     Route: 042
     Dates: end: 20120806
  17. CALCIUM CHLORIDE HYDRATE [Concomitant]
     Indication: SURGERY
     Dosage: 60 ml millilitre(s), daily dose
     Route: 042
     Dates: end: 20120806
  18. CONCLYTE MG [Concomitant]
     Indication: SURGERY
     Dosage: 80 ml millilitre(s), daily dose
     Route: 042
     Dates: end: 20120806
  19. DOBUPUM [Concomitant]
     Indication: SURGERY
     Dosage: 150 Mg milligram(s), daily dose
     Dates: end: 20120806
  20. MANNIGEN [Concomitant]
     Indication: SURGERY
     Dosage: 400 ml millilitre(s), daily dose
     Route: 042
     Dates: end: 20120806
  21. BICARBON [Concomitant]
     Indication: SURGERY
     Dosage: 2500 ml millilitre(s), daily dose
     Route: 042
     Dates: end: 20120806
  22. NEO SYNESIN [Concomitant]
     Indication: INDUCTION OF ANAESTHESIA
     Dosage: 9 Mg milligram(s), daily dose
     Route: 042
     Dates: end: 20120806
  23. DIPRIVAN [Concomitant]
     Indication: INDUCTION OF ANAESTHESIA
     Dosage: 150 ml millilitre(s), daily dose
     Route: 042
     Dates: end: 20120806
  24. MUSCURATE [Concomitant]
     Indication: INDUCTION OF ANAESTHESIA
     Dosage: 12 Mg milligram(s), daily dose
     Route: 042
     Dates: end: 20120806
  25. ULTIVA [Concomitant]
     Indication: INDUCTION OF ANAESTHESIA
     Dosage: 4 Mg milligram(s), daily dose
     Route: 042
     Dates: end: 20120806
  26. FENTANYL [Concomitant]
     Indication: INDUCTION OF ANAESTHESIA
     Dosage: 1.2 Mg milligram(s), daily dose
     Route: 042
     Dates: end: 20120806
  27. ALBUMINAR [Concomitant]
     Indication: PROPHYLAXIS
     Dosage: 250 ml millilitre(s), daily dose
     Route: 042
     Dates: end: 20120807
  28. SOLU MEDROL [Concomitant]
     Indication: PROPHYLAXIS
     Dosage: 1000 Mg milligram(s), daily dose
     Route: 042
     Dates: end: 20120809
  29. SOLU MEDROL [Concomitant]
     Indication: POSTOPERATIVE CARE
  30. CONCENTRATED RED CELLS [Concomitant]
     Indication: SURGERY
     Dosage: 200 ml millilitre(s), daily dose
     Route: 042
     Dates: end: 20120810
  31. TAKEPRON [Concomitant]
     Indication: PROPHYLAXIS
     Dosage: 60 Mg milligram(s), daily dose
     Route: 042
     Dates: end: 20120810
  32. CRESTOR [Concomitant]
     Dosage: 2.5 Mg milligram(s), daily dose
     Route: 048
  33. ALDACTONE A [Concomitant]
     Indication: CARDIAC FAILURE
     Dosage: 25 Mg milligram(s), daily dose
     Route: 048
  34. BLOPRESS [Concomitant]
     Dosage: 4 Mg milligram(s), daily dose
     Route: 048
  35. TAKEPRON [Concomitant]
     Indication: PROPHYLAXIS
     Dosage: 15 Mg milligram(s), daily dose
     Route: 048
  36. FUROSEMIDE [Concomitant]
     Indication: CARDIAC FAILURE
     Dosage: 160 Mg milligram(s), daily dose
     Route: 048
  37. ARTIST [Concomitant]
     Indication: CARDIAC FAILURE
     Dosage: 7.5 Mg milligram(s), daily dose
     Route: 048
  38. AMIODARONE HYDROCHLORIDE [Concomitant]
     Dosage: 200 Mg milligram(s), daily dose
     Route: 048
  39. ALLORIN Q [Concomitant]
     Dosage: 200 Mg milligram(s), daily dose
     Route: 048
  40. WARFARIN [Concomitant]
     Indication: PROPHYLAXIS
     Dosage: 1.5 Mg milligram(s), daily dose
     Route: 048
  41. FULCALIQ [Concomitant]
     Indication: SURGERY
     Dosage: 984 ml millilitre(s), daily dose
     Route: 041
  42. HEPARIN [Concomitant]
     Dosage: 1440 Iu, daily dose
     Route: 041
  43. MILRILA [Concomitant]
     Indication: CARDIAC FAILURE
     Dosage: 43.2 Mg milligram(s), daily dose
  44. ONOACT [Concomitant]
     Indication: PROPHYLAXIS
     Dosage: 288 Mg milligram(s), daily dose
  45. FENTANEST [Concomitant]
     Indication: PROPHYLAXIS
     Dosage: 0.9 Mg milligram(s), daily dose
  46. HANP [Concomitant]
     Indication: CARDIAC FAILURE
     Dosage: 7200 mcg, daily dose
  47. HUMALIN [Concomitant]
     Dosage: 84 Iu, daily dose
  48. CEFAMEZIN ALPHA [Concomitant]
     Indication: PROPHYLAXIS
     Dosage: 2 G gram(s), daily dose
     Route: 042

REACTIONS (4)
  - Atrial fibrillation [Recovered/Resolved]
  - Hypernatraemia [Recovered/Resolved]
  - White blood cell count increased [Recovered/Resolved]
  - Thrombocytopenia [Recovered/Resolved]
